FAERS Safety Report 9392041 (Version 1)
Quarter: 2013Q3

REPORT INFORMATION
  Report Type: Spontaneous
  Country: US (occurrence: None)
  Receive Date: 20130705
  Receipt Date: 20130705
  Transmission Date: 20140515
  Serious: Yes (Hospitalization)
  Sender: FDA-Public Use
  Company Number: AT-023357

PATIENT
  Age: 85 Year
  Sex: Male

DRUGS (7)
  1. CHLORAMBUCIL [Suspect]
     Indication: CHRONIC LYMPHOCYTIC LEUKAEMIA
     Dosage: 44 MG EVERY TWO WEEKS (44 MILLIGRAM, 1 ), ORAL
     Route: 048
     Dates: start: 20110224
  2. RITUXIMAB [Suspect]
     Indication: CHRONIC LYMPHOCYTIC LEUKAEMIA
     Dosage: 995MG MONTHLY (995 MILLIGRAM, 1 ), INTRAVENOUS (NOT OTHERWISE SPECIFIED)
     Route: 042
     Dates: start: 20110224
  3. TAMSULOSIN (TAMSULOSIN) [Concomitant]
  4. TEBOFORATAN (GINKGO BILOBA) [Concomitant]
  5. HYDROCHLOROTHIAZIDE + RAMIPROL (HYDROCHLOROTHIAZIDE, COMBINATIONS) [Concomitant]
  6. TRITTICO (TRAZODONE) [Concomitant]
  7. SELOKEN (METROPROLOL) [Concomitant]

REACTIONS (5)
  - Upper respiratory tract infection [None]
  - Hypertonia [None]
  - Chest pain [None]
  - Pleural effusion [None]
  - Bronchitis [None]
